FAERS Safety Report 23693575 (Version 1)
Quarter: 2024Q2

REPORT INFORMATION
  Report Type: Spontaneous
  Country: RU (occurrence: RU)
  Receive Date: 20240401
  Receipt Date: 20240401
  Transmission Date: 20240716
  Serious: Yes (Other)
  Sender: FDA-Public Use
  Company Number: RU-Merck Healthcare KGaA-2024015798

PATIENT
  Age: 67 Year
  Sex: Male

DRUGS (13)
  1. ERBITUX [Suspect]
     Active Substance: CETUXIMAB
     Indication: Colorectal cancer metastatic
     Dosage: UNK
     Dates: start: 202006, end: 202101
  2. ERBITUX [Suspect]
     Active Substance: CETUXIMAB
     Dosage: UNK
     Dates: start: 202102, end: 202111
  3. ERBITUX [Suspect]
     Active Substance: CETUXIMAB
     Dosage: UNK
     Dates: start: 20230901
  4. LEUCOVORIN [Suspect]
     Active Substance: LEUCOVORIN\LEUCOVORIN CALCIUM
     Indication: Colorectal cancer metastatic
     Dosage: UNK UNK, UNKNOWN
     Dates: start: 202006, end: 202101
  5. LEUCOVORIN [Suspect]
     Active Substance: LEUCOVORIN\LEUCOVORIN CALCIUM
     Dosage: UNK UNK, UNKNOWN
     Route: 065
     Dates: start: 202111, end: 202201
  6. LEUCOVORIN [Suspect]
     Active Substance: LEUCOVORIN\LEUCOVORIN CALCIUM
     Dosage: UNK UNK, UNKNOWN
     Route: 065
     Dates: start: 20230901
  7. FLUOROURACIL [Suspect]
     Active Substance: FLUOROURACIL
     Indication: Colorectal cancer metastatic
     Dosage: UNK UNK, UNKNOWN
     Route: 065
     Dates: start: 202006, end: 202101
  8. FLUOROURACIL [Suspect]
     Active Substance: FLUOROURACIL
     Dosage: UNK UNK, UNKNOWN
     Route: 065
     Dates: start: 202111, end: 202201
  9. FLUOROURACIL [Suspect]
     Active Substance: FLUOROURACIL
     Dosage: 2000 MG/M2, UNK
     Route: 065
     Dates: start: 20230901
  10. IRINOTECAN [Suspect]
     Active Substance: IRINOTECAN
     Indication: Colorectal cancer metastatic
     Dosage: UNK UNK, UNKNOWN
     Route: 065
     Dates: start: 202006, end: 202101
  11. IRINOTECAN [Suspect]
     Active Substance: IRINOTECAN
     Dosage: UNK UNK, UNKNOWN
     Route: 065
     Dates: start: 202111, end: 202201
  12. OXALIPLATIN [Suspect]
     Active Substance: OXALIPLATIN
     Indication: Colorectal cancer metastatic
     Dosage: UNK UNK, UNKNOWN
     Route: 065
     Dates: start: 201404, end: 201409
  13. OXALIPLATIN [Suspect]
     Active Substance: OXALIPLATIN
     Dosage: UNK UNK, UNKNOWN
     Route: 065
     Dates: start: 20230901

REACTIONS (4)
  - Polyneuropathy [Unknown]
  - Thrombocytopenia [Unknown]
  - Skin toxicity [Unknown]
  - Asthenia [Unknown]
